FAERS Safety Report 16167336 (Version 2)
Quarter: 2019Q2

REPORT INFORMATION
  Report Type: Other
  Country: IT (occurrence: IT)
  Receive Date: 20190408
  Receipt Date: 20190412
  Transmission Date: 20190711
  Serious: Yes (Other)
  Sender: FDA-Public Use
  Company Number: IT-CELLTRION INC.-2019IT019079

PATIENT

DRUGS (1)
  1. INFLIXIMAB (UNKNOWN) [Suspect]
     Active Substance: INFLIXIMAB
     Indication: COLITIS
     Dosage: 300 MG
     Route: 042
     Dates: start: 20160601, end: 20180911

REACTIONS (7)
  - Diarrhoea haemorrhagic [Unknown]
  - Pyrexia [Unknown]
  - Defaecation urgency [Unknown]
  - Drug ineffective [Unknown]
  - Colitis ulcerative [Unknown]
  - Colitis [Unknown]
  - Asthenia [Unknown]

NARRATIVE: CASE EVENT DATE: 20180911
